FAERS Safety Report 24225055 (Version 2)
Quarter: 2025Q2

REPORT INFORMATION
  Report Type: Spontaneous
  Country: US (occurrence: US)
  Receive Date: 20240820
  Receipt Date: 20250421
  Transmission Date: 20250716
  Serious: No
  Sender: SANOFI AVENTIS
  Company Number: US-SA-SAC20240814001013

PATIENT
  Age: 24 Year
  Sex: Male

DRUGS (1)
  1. DUPIXENT [Suspect]
     Active Substance: DUPILUMAB
     Indication: Eosinophilic oesophagitis
     Dosage: 300 MG, QW
     Route: 058

REACTIONS (6)
  - Eye pain [Unknown]
  - Ocular hyperaemia [Recovered/Resolved]
  - Injection site pain [Recovered/Resolved]
  - Eye irritation [Recovered/Resolved]
  - Skin irritation [Unknown]
  - Condition aggravated [Unknown]
